FAERS Safety Report 8021285-9 (Version None)
Quarter: 2012Q1

REPORT INFORMATION
  Report Type: 
  Country: None (occurrence: None)
  Receive Date: 20120104
  Receipt Date: 20111222
  Transmission Date: 20120608
  Serious: Yes (Hospitalization)
  Sender: FDA-Public Use
  Company Number: US-BAYER-2011-065197

PATIENT
  Age: 21 Year
  Sex: Female
  Weight: 131.52 kg

DRUGS (8)
  1. DDAVP [Concomitant]
     Indication: HAEMATURIA
     Dosage: UNK
     Dates: start: 20070101, end: 20090101
  2. DDAVP [Concomitant]
     Indication: URINARY TRACT INFECTION
  3. CIPROFLOXACIN [Concomitant]
     Indication: BRONCHITIS
  4. YAZ [Suspect]
     Indication: CONTRACEPTION
     Dosage: UNK
     Dates: start: 20090611, end: 20090730
  5. ORTHO TRI-CYCLEN [Concomitant]
  6. YAZ [Suspect]
     Indication: MENSTRUATION IRREGULAR
  7. SEPTRA DS [Concomitant]
  8. B1 VITAMIN [Concomitant]
     Dosage: UNK
     Route: 048
     Dates: start: 20090501, end: 20090601

REACTIONS (2)
  - PULMONARY EMBOLISM [None]
  - INJURY [None]
